FAERS Safety Report 24056288 (Version 1)
Quarter: 2024Q3

REPORT INFORMATION
  Report Type: Spontaneous
  Country: US (occurrence: US)
  Receive Date: 20240705
  Receipt Date: 20240705
  Transmission Date: 20241016
  Serious: Yes (Other)
  Sender: ELI LILLY AND CO
  Company Number: US-ELI_LILLY_AND_COMPANY-US202406017861

PATIENT
  Age: 73 Year
  Sex: Female

DRUGS (1)
  1. HUMALOG KWIKPEN [Suspect]
     Active Substance: INSULIN LISPRO
     Indication: Product used for unknown indication
     Dosage: 51 U, MAX DOSE DAILY, PER SLIDING SCALE
     Route: 065

REACTIONS (4)
  - Aneurysm [Unknown]
  - Neoplasm malignant [Unknown]
  - Renal disorder [Unknown]
  - Road traffic accident [Unknown]
